FAERS Safety Report 9536080 (Version 1)
Quarter: 2013Q2

REPORT INFORMATION
  Report Type: Spontaneous
  Country: US (occurrence: None)
  Receive Date: 20130507
  Receipt Date: 20130507
  Transmission Date: 20140414
  Serious: Yes (Other)
  Sender: FDA-Public Use
  Company Number: PHEH2012US024201

PATIENT
  Sex: Male

DRUGS (11)
  1. AFINITOR [Suspect]
     Route: 048
  2. OMEPRAZOLE (OMEPRAZOLE) [Concomitant]
  3. LEVOTHYROXIN (LEVOTHYROXINE SODIUM) [Concomitant]
  4. KEPPRA (LEVETIRACETAM) TABLET [Concomitant]
  5. OXYCONTIN (OXYCODONE HYDROCHLORIDE) [Concomitant]
  6. ZOLPIDEM (ZOLPIDEM) TABLET [Concomitant]
  7. DICYCLOMINE (DICYCLOVERINE) TABLET [Concomitant]
  8. TAMSULOSIN (TAMSULOSIN) CAPSULE [Concomitant]
  9. WELLBUTRIN (BUPROPION HYDROCHLORIDE) TABLET [Concomitant]
  10. MIRALAX [Concomitant]
  11. MULTI VIT CHOICE (ASCORBIC ACID, BETACAROTENE, BIOTIN, CHROMIUM, COPPER, FOLIC ACID, IRON, LYCOPENE, MAGNESIUM, MANGANESE, MOLYBDENUM, NICOTINAMIDE, PANTOTHENIC ACID, POTASSIUM, PYRIDOXINE, RETINOL, RIBOFLAVIN, SELENIUM, SILICON, THIAMINE, TOCOPHEROL, VITAMIN B12 NOS, VITAMIN D NOS, ZINC) [Concomitant]

REACTIONS (2)
  - Renal cancer [None]
  - Malignant neoplasm progression [None]
